FAERS Safety Report 7499445-5 (Version None)
Quarter: 2011Q2

REPORT INFORMATION
  Report Type: 
  Country: None (occurrence: None)
  Receive Date: 20110524
  Receipt Date: 20110512
  Transmission Date: 20111010
  Serious: Yes (Other)
  Sender: FDA-Public Use
  Company Number: PHHY2011BR40957

PATIENT
  Age: 63 Year
  Sex: Male

DRUGS (1)
  1. EXFORGE [Suspect]
     Indication: HYPERTENSION
     Dosage: 160 MG OF VALSARTAN/12.5 MG AMLODIPINE IN THE MORNING

REACTIONS (3)
  - DENGUE FEVER [None]
  - MALAISE [None]
  - ASTHENIA [None]
